FAERS Safety Report 5259367-7 (Version None)
Quarter: 2007Q1

REPORT INFORMATION
  Report Type: 
  Country: None (occurrence: None)
  Receive Date: 20070305
  Receipt Date: 20070220
  Transmission Date: 20070707
  Serious: Yes (Death, Life-Threatening, Disabling)
  Sender: FDA-Public Use
  Company Number: OSCN-GE-0702S-0059

PATIENT
  Age: 35 Year
  Sex: Male
  Weight: 80 kg

DRUGS (4)
  1. OMNISCAN [Suspect]
     Indication: ACUTE ABDOMEN
     Dosage: SEE IMAGE
     Dates: start: 20010608, end: 20010608
  2. OMNISCAN [Suspect]
     Indication: ACUTE ABDOMEN
     Dosage: SEE IMAGE
     Dates: start: 20010621, end: 20010621
  3. OMNISCAN [Suspect]
     Indication: ACUTE ABDOMEN
     Dosage: SEE IMAGE
     Dates: start: 20010810, end: 20010810
  4. OMNISCAN [Suspect]
     Indication: ACUTE ABDOMEN
     Dosage: SEE IMAGE
     Dates: start: 20010917, end: 20010917

REACTIONS (5)
  - MYOPATHY [None]
  - NEPHROGENIC FIBROSING DERMOPATHY [None]
  - NEPHROTIC SYNDROME [None]
  - SCLERODERMA [None]
  - SEPSIS [None]
